FAERS Safety Report 7607585-2 (Version None)
Quarter: 2011Q3

REPORT INFORMATION
  Report Type: 
  Country: None (occurrence: None)
  Receive Date: 20110713
  Receipt Date: 20110704
  Transmission Date: 20111222
  Serious: Yes (Other)
  Sender: FDA-Public Use
  Company Number: PHHY2011CI60893

PATIENT
  Age: 32 Year
  Sex: Female

DRUGS (4)
  1. AREDIA [Suspect]
     Indication: OSTEONECROSIS
     Dosage: 90 MG, DAILY
  2. FOSAMAX [Suspect]
     Indication: OSTEONECROSIS
     Dosage: 70 MG, QW
  3. ZOMETA [Suspect]
     Indication: OSTEONECROSIS
     Dosage: 90 MG, DAILY
     Dates: start: 20040101
  4. CORTICOSTEROIDS [Suspect]

REACTIONS (3)
  - OSTEONECROSIS [None]
  - PAIN [None]
  - MOUTH ULCERATION [None]
